FAERS Safety Report 16051156 (Version 1)
Quarter: 2019Q1

REPORT INFORMATION
  Report Type: Report from Study
  Country: IT (occurrence: IT)
  Receive Date: 20190308
  Receipt Date: 20190308
  Transmission Date: 20190418
  Serious: Yes (Other)
  Sender: FDA-Public Use
  Company Number: IT-TEVA-2019-IT-1018228

PATIENT
  Age: 52 Year
  Sex: Male
  Weight: 67 kg

DRUGS (4)
  1. REQUIP [Suspect]
     Active Substance: ROPINIROLE HYDROCHLORIDE
     Indication: PARKINSONISM
     Dosage: 1 DOSAGE FORMS DAILY;
     Route: 048
     Dates: start: 20131115, end: 20140415
  2. AZILECT [Suspect]
     Active Substance: RASAGILINE MESYLATE
     Indication: PARKINSONISM
     Dosage: 1 DOSAGE FORMS DAILY;
     Route: 048
     Dates: start: 20120701, end: 20190212
  3. UBICOR 50 MG CAPSULE RIGIDE [Concomitant]
     Route: 048
  4. RIGENTEX 400 U.I. CAPSULE MOLLI [Concomitant]
     Indication: PARKINSONISM
     Route: 048

REACTIONS (4)
  - Hallucination, visual [Recovering/Resolving]
  - Paranoia [Recovering/Resolving]
  - Delusion of reference [Recovering/Resolving]
  - Hallucination, auditory [Recovering/Resolving]

NARRATIVE: CASE EVENT DATE: 20140315
